FAERS Safety Report 6631867-4 (Version None)
Quarter: 2010Q1

REPORT INFORMATION
  Report Type: 
  Country: None (occurrence: None)
  Receive Date: 20100312
  Receipt Date: 20100304
  Transmission Date: 20100710
  Serious: Yes (Death)
  Sender: FDA-Public Use
  Company Number: US-ROCHE-689488

PATIENT
  Age: 67 Year
  Sex: Male

DRUGS (1)
  1. AVASTIN [Suspect]
     Dosage: DOSE: 1200 MG, 4 TREATMENTS
     Route: 042

REACTIONS (1)
  - DEATH [None]
